FAERS Safety Report 8623908-X (Version None)
Quarter: 2012Q3

REPORT INFORMATION
  Report Type: 
  Country: None (occurrence: None)
  Receive Date: 20120827
  Receipt Date: 20120821
  Transmission Date: 20120928
  Serious: Yes (Other)
  Sender: FDA-Public Use
  Company Number: PHEH2012US016407

PATIENT
  Sex: Male

DRUGS (1)
  1. CLOZARIL [Suspect]
     Dosage: UNK UKN, UNK

REACTIONS (5)
  - WHITE BLOOD CELL COUNT INCREASED [None]
  - CONCOMITANT DISEASE AGGRAVATED [None]
  - PSYCHOTIC DISORDER [None]
  - LEUKAEMIA [None]
  - RED BLOOD CELL COUNT DECREASED [None]
